FAERS Safety Report 10206323 (Version 1)
Quarter: 2014Q2

REPORT INFORMATION
  Report Type: Spontaneous
  Country: US (occurrence: None)
  Receive Date: 20140527
  Receipt Date: 20140527
  Transmission Date: 20141212
  Serious: Yes (Hospitalization)
  Sender: FDA-Public Use
  Company Number: None

PATIENT
  Age: 60 Year
  Sex: Male
  Weight: 89.4 kg

DRUGS (2)
  1. CIPROFLOXACIN [Suspect]
     Route: 048
     Dates: start: 20131217, end: 20131221
  2. PANTOPRAZOLE [Suspect]
     Route: 048
     Dates: start: 20130704

REACTIONS (7)
  - Abdominal pain [None]
  - Colitis [None]
  - Systemic inflammatory response syndrome [None]
  - Diverticulum [None]
  - Hepatic cirrhosis [None]
  - Clostridium test positive [None]
  - Leukocytosis [None]
